FAERS Safety Report 7365555-6 (Version None)
Quarter: 2011Q1

REPORT INFORMATION
  Report Type: 
  Country: None (occurrence: None)
  Receive Date: 20110322
  Receipt Date: 20100914
  Transmission Date: 20110831
  Serious: Yes (Hospitalization, Other)
  Sender: FDA-Public Use
  Company Number: US-BAYER-201021553NA

PATIENT
  Sex: Female
  Weight: 88.435 kg

DRUGS (12)
  1. METFORMIN [Concomitant]
     Dosage: 500 MG, UNK
  2. FISH OIL [Concomitant]
  3. YAZ [Suspect]
     Dosage: UNK
     Dates: start: 20081101, end: 20090601
  4. ASCORBIC ACID [Concomitant]
     Dosage: UNK UNK, PRN
  5. HYDROCODONE BITARTRATE [Concomitant]
  6. NAPROXEN [Concomitant]
  7. IBUPROFEN [Concomitant]
     Dosage: UNK UNK, PRN
  8. YAZ [Suspect]
     Indication: CONTRACEPTION
     Dosage: AS USED DOSE: UNK
     Route: 048
     Dates: start: 20070701, end: 20080601
  9. PROMETHAZINE [Concomitant]
  10. PROGESTERONE [Concomitant]
     Dosage: UNK
     Dates: start: 20050826
  11. MULTI-VITAMINS [Concomitant]
     Dosage: UNK UNK, PRN
  12. UNKNOWN [Concomitant]
     Dosage: UNK UNK, TID

REACTIONS (3)
  - GALLBLADDER DISORDER [None]
  - CHOLECYSTITIS [None]
  - ANXIETY [None]
